FAERS Safety Report 23712912 (Version 1)
Quarter: 2024Q2

REPORT INFORMATION
  Report Type: Spontaneous
  Country: CN (occurrence: CN)
  Receive Date: 20240405
  Receipt Date: 20240405
  Transmission Date: 20240715
  Serious: Yes (Other)
  Sender: FDA-Public Use
  Company Number: CN-BoehringerIngelheim-2024-BI-018633

PATIENT
  Age: 67 Year
  Sex: Female
  Weight: 47 kg

DRUGS (2)
  1. ALTEPLASE [Suspect]
     Active Substance: ALTEPLASE
     Indication: Cerebral infarction
     Dosage: BOLUS (WITHIN 1 MINUTE)
     Route: 040
     Dates: start: 20240317, end: 20240317
  2. ALTEPLASE [Suspect]
     Active Substance: ALTEPLASE
     Dosage: INJECTION PUMPED WITHIN 1 HOUR
     Route: 042
     Dates: start: 20240317, end: 20240317

REACTIONS (2)
  - Cerebral haemorrhage [Recovering/Resolving]
  - Headache [Recovering/Resolving]

NARRATIVE: CASE EVENT DATE: 20240317
